FAERS Safety Report 6325872-5 (Version None)
Quarter: 2009Q3

REPORT INFORMATION
  Report Type: 
  Country: None (occurrence: None)
  Receive Date: 20090824
  Receipt Date: 20090813
  Transmission Date: 20100115
  Serious: Yes (Hospitalization)
  Sender: FDA-Public Use
  Company Number: PL-MERCK-0908POL00010

PATIENT
  Age: 23 Year
  Sex: Male

DRUGS (2)
  1. SINGULAIR [Suspect]
     Indication: ASTHMA
     Route: 065
  2. CORTICOSTEROIDS (UNSPECIFIED) [Concomitant]
     Indication: ASTHMA
     Route: 065

REACTIONS (20)
  - ALANINE AMINOTRANSFERASE INCREASED [None]
  - ALLERGIC GRANULOMATOUS ANGIITIS [None]
  - ASPARTATE AMINOTRANSFERASE INCREASED [None]
  - BLOOD CREATINE PHOSPHOKINASE INCREASED [None]
  - BLOOD CULTURE POSITIVE [None]
  - BLOOD LACTATE DEHYDROGENASE INCREASED [None]
  - BLOOD PRESSURE DECREASED [None]
  - BONE PAIN [None]
  - CARDIAC FAILURE [None]
  - CARDIAC VALVE VEGETATION [None]
  - DISEASE COMPLICATION [None]
  - EJECTION FRACTION DECREASED [None]
  - ENDOCARDITIS [None]
  - GENERAL PHYSICAL HEALTH DETERIORATION [None]
  - LEUKOCYTOSIS [None]
  - LUNG DISORDER [None]
  - PERICARDIAL EFFUSION [None]
  - PNEUMONIA [None]
  - PYREXIA [None]
  - STAPHYLOCOCCAL INFECTION [None]
